FAERS Safety Report 13472553 (Version 3)
Quarter: 2017Q2

REPORT INFORMATION
  Report Type: Spontaneous
  Country: US (occurrence: US)
  Receive Date: 20170424
  Receipt Date: 20170511
  Transmission Date: 20170830
  Serious: Yes (Hospitalization)
  Sender: FDA-Public Use
  Company Number: US-PFIZER INC-2017163780

PATIENT
  Age: 74 Year
  Sex: Female
  Weight: 79.82 kg

DRUGS (1)
  1. IBRANCE [Suspect]
     Active Substance: PALBOCICLIB
     Indication: BREAST CANCER METASTATIC
     Dosage: 125 MG, CYCLIC, (DAY1-21 EVERY 28 DAYS)
     Route: 048
     Dates: start: 20170308

REACTIONS (5)
  - Myocardial infarction [Unknown]
  - Hypotension [Unknown]
  - Asthenia [Unknown]
  - Vomiting [Unknown]
  - Dyspnoea [Unknown]

NARRATIVE: CASE EVENT DATE: 20170407
